FAERS Safety Report 12221532 (Version 1)
Quarter: 2016Q1

REPORT INFORMATION
  Report Type: Spontaneous
  Country: US (occurrence: None)
  Receive Date: 20160329
  Receipt Date: 20160329
  Transmission Date: 20160526
  Serious: No
  Sender: FDA-Public Use
  Company Number: None

PATIENT
  Age: 75 Year
  Sex: Female

DRUGS (6)
  1. PROAIR HFA [Suspect]
     Active Substance: ALBUTEROL SULFATE
     Indication: ASTHMA
     Dosage: 2 INHALATIONS ORALLY 4 TIMES DAILY AS NEEDED BY MOUTH
     Route: 048
  2. MONTELAKAST [Concomitant]
  3. DICYCLOMINE [Concomitant]
     Active Substance: DICYCLOMINE HYDROCHLORIDE
  4. BUTEROL [Concomitant]
  5. CALCIUM + #D VITAMINS [Concomitant]
  6. VENTOLIN [Concomitant]
     Active Substance: ALBUTEROL SULFATE

REACTIONS (4)
  - Dizziness [None]
  - Tremor [None]
  - Fear [None]
  - Device issue [None]

NARRATIVE: CASE EVENT DATE: 20151008
